FAERS Safety Report 8533038-3 (Version None)
Quarter: 2012Q3

REPORT INFORMATION
  Report Type: 
  Country: None (occurrence: None)
  Receive Date: 20120711
  Receipt Date: 20120627
  Transmission Date: 20120928
  Serious: Yes (Other)
  Sender: FDA-Public Use
  Company Number: 2012NA000067

PATIENT
  Age: 56 Year
  Sex: Male

DRUGS (2)
  1. DICLOFENAC SODIUM [Suspect]
     Indication: PAIN IN EXTREMITY
     Dosage: 100 MG;BID
     Dates: start: 20110501
  2. PRAVASTATIN [Concomitant]

REACTIONS (4)
  - DYSPNOEA [None]
  - PULMONARY OEDEMA [None]
  - PRODUCTIVE COUGH [None]
  - HAEMOPTYSIS [None]
